FAERS Safety Report 16738622 (Version 1)
Quarter: 2019Q3

REPORT INFORMATION
  Report Type: Spontaneous
  Country: US (occurrence: US)
  Receive Date: 20190826
  Receipt Date: 20190826
  Transmission Date: 20191005
  Serious: Yes (Other)
  Sender: FDA-Public Use
  Company Number: US-CIPLA LTD.-2019US05842

PATIENT

DRUGS (3)
  1. KOLOPIN [Concomitant]
     Indication: ANXIETY
     Dosage: UNK
     Route: 065
  2. VICODIN [Concomitant]
     Active Substance: ACETAMINOPHEN\HYDROCODONE BITARTRATE
     Indication: NEURALGIA
     Dosage: 1 MILLIGRAM, UNK
     Route: 065
  3. GABAPENTIN. [Suspect]
     Active Substance: GABAPENTIN
     Indication: NERVE INJURY
     Dosage: 900 MILLIGRAM, QID
     Route: 048

REACTIONS (8)
  - Fat tissue decreased [Unknown]
  - Dental caries [Unknown]
  - Emotional distress [Unknown]
  - Dry mouth [Not Recovered/Not Resolved]
  - Depression [Unknown]
  - Product packaging quantity issue [Unknown]
  - Tooth loss [Not Recovered/Not Resolved]
  - Social avoidant behaviour [Unknown]
